FAERS Safety Report 5344186-3 (Version None)
Quarter: 2007Q2

REPORT INFORMATION
  Report Type: 
  Country: None (occurrence: None)
  Receive Date: 20070531
  Receipt Date: 20070531
  Transmission Date: 20071010
  Serious: Yes (Other)
  Sender: FDA-Public Use
  Company Number: None

PATIENT
  Sex: Male

DRUGS (13)
  1. REVLIMID [Suspect]
     Indication: MULTIPLE MYELOMA
     Dosage: 25 MG DAILY FOR 21 DAYS PO
     Route: 048
     Dates: start: 20061103, end: 20070423
  2. REVLIMID [Suspect]
     Indication: MULTIPLE MYELOMA
     Dosage: 25 MG DAILY FOR 21 DAYS PO
     Route: 048
     Dates: start: 20061103, end: 20070423
  3. ZOMETA [Concomitant]
  4. DECADRON [Concomitant]
  5. PROCRIT [Concomitant]
  6. WARFARIN SODIUM [Concomitant]
  7. K-TAB [Concomitant]
  8. CLONIDINE [Concomitant]
  9. NIFEDIPINE [Concomitant]
  10. DIPHENOXYLATE HCL + ATROPINE SULFATE [Concomitant]
  11. IPRATROPIUM BROMIDE [Concomitant]
  12. ASMANEX TWISTHALER [Concomitant]
  13. ATROVENT [Concomitant]

REACTIONS (1)
  - NEUROPATHY PERIPHERAL [None]
